FAERS Safety Report 8542173-5 (Version None)
Quarter: 2012Q3

REPORT INFORMATION
  Report Type: 
  Country: None (occurrence: None)
  Receive Date: 20120726
  Receipt Date: 20111013
  Transmission Date: 20120928
  Serious: No
  Sender: FDA-Public Use
  Company Number: US-ASTRAZENECA-2011SE61783

PATIENT
  Age: 63 Year
  Sex: Female
  Weight: 48.1 kg

DRUGS (7)
  1. LAMICTAL [Concomitant]
  2. PROVIGIL [Suspect]
     Indication: DEPRESSION
     Dates: start: 20070401, end: 20101222
  3. ALPRAZOLAM [Concomitant]
  4. AMBIEN [Concomitant]
  5. DEPLIN [Concomitant]
  6. GEODON [Suspect]
  7. SEROQUEL [Suspect]
     Route: 048
     Dates: start: 20080901, end: 20100901

REACTIONS (3)
  - WEIGHT DECREASED [None]
  - IMPAIRED DRIVING ABILITY [None]
  - VISUAL IMPAIRMENT [None]
